FAERS Safety Report 15585021 (Version 1)
Quarter: 2018Q4

REPORT INFORMATION
  Report Type: Spontaneous
  Country: JP (occurrence: JP)
  Receive Date: 20181102
  Receipt Date: 20181102
  Transmission Date: 20190205
  Serious: Yes (Other)
  Sender: FDA-Public Use
  Company Number: JP-SHIRE-JP201823313

PATIENT

DRUGS (13)
  1. INTUNIV [Suspect]
     Active Substance: GUANFACINE HYDROCHLORIDE
     Dosage: 1.5 MG, 1X/DAY:QD
     Route: 048
     Dates: start: 20180302, end: 20180306
  2. AZUSALEON [Concomitant]
     Indication: RHINITIS ALLERGIC
     Dosage: UNK
     Dates: start: 20180410, end: 20180415
  3. CARBOCISTEINE [Concomitant]
     Active Substance: CARBOCYSTEINE
     Indication: BRONCHITIS
     Dosage: UNK
     Dates: start: 20180410, end: 20180415
  4. COCARL [Concomitant]
     Active Substance: ACETAMINOPHEN
     Indication: HEADACHE
  5. ALLERMIST [Concomitant]
     Active Substance: FLUTICASONE FUROATE
     Indication: RHINITIS ALLERGIC
     Dosage: UNK
     Dates: start: 20180319
  6. INTUNIV [Suspect]
     Active Substance: GUANFACINE HYDROCHLORIDE
     Dosage: 1 MG, 1X/DAY:QD
     Route: 048
     Dates: start: 20180223, end: 20180301
  7. PATANOL [Concomitant]
     Active Substance: OLOPATADINE HYDROCHLORIDE
     Indication: CONJUNCTIVITIS ALLERGIC
     Dosage: UNK
     Dates: start: 20180319
  8. INTUNIV [Suspect]
     Active Substance: GUANFACINE HYDROCHLORIDE
     Dosage: 1.5 MG, 1X/DAY:QD
     Route: 048
     Dates: start: 20180324, end: 20180603
  9. INTUNIV [Suspect]
     Active Substance: GUANFACINE HYDROCHLORIDE
     Dosage: 2 MG, 1X/DAY:QD
     Route: 048
     Dates: start: 20180307, end: 20180323
  10. INTUNIV [Suspect]
     Active Substance: GUANFACINE HYDROCHLORIDE
     Indication: ATTENTION DEFICIT/HYPERACTIVITY DISORDER
     Dosage: 0.5 MG, 1X/DAY:QD
     Route: 048
     Dates: start: 20180209, end: 20180222
  11. INTUNIV [Suspect]
     Active Substance: GUANFACINE HYDROCHLORIDE
     Dosage: 1 MG, 1X/DAY:QD
     Route: 048
     Dates: start: 20180604, end: 20180610
  12. INTUNIV [Suspect]
     Active Substance: GUANFACINE HYDROCHLORIDE
     Dosage: 0.5 MG, 1X/DAY:QD
     Route: 048
     Dates: start: 20180611, end: 20180617
  13. PROCATEROL HCL [Concomitant]
     Indication: BRONCHITIS
     Dosage: UNK
     Dates: start: 20180410, end: 20180415

REACTIONS (2)
  - Product prescribing error [Unknown]
  - Long QT syndrome [Recovered/Resolved]

NARRATIVE: CASE EVENT DATE: 201802
